FAERS Safety Report 4392412-X (Version None)
Quarter: 2004Q3

REPORT INFORMATION
  Report Type: 
  Country: None (occurrence: None)
  Receive Date: 20040702
  Receipt Date: 20040305
  Transmission Date: 20050211
  Serious: Yes (Other)
  Sender: FDA-Public Use
  Company Number: 2004UW04165

PATIENT
  Age: 62 Year
  Sex: Female
  Weight: 91.6266 kg

DRUGS (5)
  1. CRESTOR [Suspect]
     Indication: BLOOD CHOLESTEROL INCREASED
     Dosage: 10 MG HS PO
     Route: 048
     Dates: start: 20040201
  2. GLUCOVANCE [Concomitant]
  3. LABETALOL HCL [Concomitant]
  4. LOVOL [Concomitant]
  5. ASPIRIN [Concomitant]

REACTIONS (2)
  - NAUSEA [None]
  - RETCHING [None]
